FAERS Safety Report 7911472-X (Version None)
Quarter: 2011Q4

REPORT INFORMATION
  Report Type: 
  Country: None (occurrence: None)
  Receive Date: 20111109
  Receipt Date: 20111102
  Transmission Date: 20120403
  Serious: Yes (Other)
  Sender: FDA-Public Use
  Company Number: 110346

PATIENT
  Age: 40 Year
  Sex: Male

DRUGS (2)
  1. GOLYTELY [Suspect]
     Indication: CONSTIPATION
  2. GOLYTELY [Suspect]
     Indication: OFF LABEL USE

REACTIONS (2)
  - INTESTINAL PERFORATION [None]
  - OFF LABEL USE [None]
